FAERS Safety Report 20219315 (Version 5)
Quarter: 2022Q2

REPORT INFORMATION
  Report Type: Spontaneous
  Country: BR (occurrence: BR)
  Receive Date: 20211222
  Receipt Date: 20220628
  Transmission Date: 20220721
  Serious: Yes (Hospitalization)
  Sender: FDA-Public Use
  Company Number: BR-GLAXOSMITHKLINE-BR2021AMR257302

PATIENT

DRUGS (3)
  1. BENLYSTA [Suspect]
     Active Substance: BELIMUMAB
     Indication: Systemic lupus erythematosus
     Dosage: UNK
     Route: 042
     Dates: start: 20170127
  2. BENLYSTA [Suspect]
     Active Substance: BELIMUMAB
     Dosage: 3 BOXES OF 400MG EVERY 28-30 DAYS
     Route: 042
     Dates: start: 20210503, end: 20210928
  3. AMOXICILLIN\CLAVULANATE POTASSIUM [Suspect]
     Active Substance: AMOXICILLIN\CLAVULANATE POTASSIUM
     Indication: Nasopharyngitis
     Dosage: 1 DF, QD

REACTIONS (9)
  - COVID-19 [Recovered/Resolved]
  - Oropharyngeal pain [Recovered/Resolved]
  - Headache [Recovered/Resolved]
  - Metabolic surgery [Not Recovered/Not Resolved]
  - Condition aggravated [Unknown]
  - Blood gases abnormal [Unknown]
  - Total lung capacity decreased [Unknown]
  - Weight decreased [Unknown]
  - Product dose omission issue [Not Recovered/Not Resolved]

NARRATIVE: CASE EVENT DATE: 20211102
